FAERS Safety Report 10401980 (Version 1)
Quarter: 2014Q3

REPORT INFORMATION
  Report Type: Spontaneous
  Country: US (occurrence: None)
  Receive Date: 20140820
  Receipt Date: 20140820
  Transmission Date: 20150326
  Serious: Yes (Life-Threatening, Disabling)
  Sender: FDA-Public Use
  Company Number: None

PATIENT
  Age: 50 Year
  Sex: Female
  Weight: 76.2 kg

DRUGS (1)
  1. CEPHALEXIN. [Suspect]
     Active Substance: CEPHALEXIN
     Indication: KIDNEY INFECTION
     Dosage: 1
     Route: 048
     Dates: start: 20140717, end: 20140728

REACTIONS (5)
  - Abdominal pain [None]
  - Muscle spasms [None]
  - Diarrhoea [None]
  - Feeling abnormal [None]
  - Clostridium test positive [None]

NARRATIVE: CASE EVENT DATE: 20140718
